FAERS Safety Report 7865521-8 (Version None)
Quarter: 2011Q4

REPORT INFORMATION
  Report Type: 
  Country: None (occurrence: None)
  Receive Date: 20111028
  Receipt Date: 20110107
  Transmission Date: 20120403
  Serious: No
  Sender: FDA-Public Use
  Company Number: US-GLAXOSMITHKLINE-A0905559A

PATIENT
  Age: 24 Year
  Sex: Male

DRUGS (3)
  1. ADVAIR DISKUS 100/50 [Suspect]
     Indication: ASTHMA
     Dosage: 1PUFF TWICE PER DAY
     Route: 055
     Dates: start: 20110105, end: 20110107
  2. ALBUTEROL INHALER [Concomitant]
     Route: 055
  3. LORATADINE [Concomitant]

REACTIONS (10)
  - PRODUCT QUALITY ISSUE [None]
  - BLOOD PRESSURE INCREASED [None]
  - HYPOAESTHESIA [None]
  - ASTHENIA [None]
  - MALAISE [None]
  - HEART RATE IRREGULAR [None]
  - COLD SWEAT [None]
  - ADVERSE DRUG REACTION [None]
  - PALPITATIONS [None]
  - HYPOAESTHESIA ORAL [None]
